FAERS Safety Report 5365039-0 (Version None)
Quarter: 2007Q2

REPORT INFORMATION
  Report Type: 
  Country: None (occurrence: None)
  Receive Date: 20070606
  Receipt Date: 20060829
  Transmission Date: 20071010
  Serious: Yes (Hospitalization)
  Sender: FDA-Public Use
  Company Number: 2006106440

PATIENT
  Age: 78 Year
  Sex: Male

DRUGS (4)
  1. PIROXICAM [Suspect]
     Indication: GOUT
     Dosage: (20 MG), ORAL
     Route: 048
  2. METHYLPREDNISOLONE [Suspect]
     Indication: GOUT
     Dosage: (8 MG), ORAL
     Route: 048
  3. AGGRENOX [Suspect]
     Indication: DRUG USE FOR UNKNOWN INDICATION
     Dates: start: 20060217
  4. PLACEBO (PLACEBO) [Suspect]
     Indication: DRUG USE FOR UNKNOWN INDICATION
     Dates: start: 20060217

REACTIONS (1)
  - GASTRIC ULCER PERFORATION [None]
